FAERS Safety Report 25044877 (Version 1)
Quarter: 2025Q1

REPORT INFORMATION
  Report Type: Spontaneous
  Country: MX (occurrence: MX)
  Receive Date: 20250306
  Receipt Date: 20250306
  Transmission Date: 20250409
  Serious: Yes (Hospitalization, Other)
  Sender: UNICHEM
  Company Number: MX-UNICHEM LABORATORIES LIMITED-UNI-2025-MX-001384

PATIENT

DRUGS (1)
  1. LAMOTRIGINE [Suspect]
     Active Substance: LAMOTRIGINE
     Indication: Cortical dysplasia
     Route: 065

REACTIONS (4)
  - Septic shock [Recovering/Resolving]
  - Multiple organ dysfunction syndrome [Recovering/Resolving]
  - Pseudomonas infection [Recovering/Resolving]
  - Toxic epidermal necrolysis [Recovering/Resolving]
